FAERS Safety Report 17712082 (Version 4)
Quarter: 2020Q2

REPORT INFORMATION
  Report Type: Spontaneous
  Country: KE (occurrence: KE)
  Receive Date: 20200427
  Receipt Date: 20200623
  Transmission Date: 20200714
  Serious: Yes (Other)
  Sender: FDA-Public Use
  Company Number: KE-009507513-2004KEN007752

PATIENT
  Sex: Female

DRUGS (2)
  1. IMPLANON NXT [Suspect]
     Active Substance: ETONOGESTREL
     Dosage: 1 IMPLANT FOR 3 YEARS
     Route: 059
     Dates: start: 20180206
  2. IMPLANON [Suspect]
     Active Substance: ETONOGESTREL
     Dosage: 1 IMPLANT FOR 3 YEARS
     Route: 059
     Dates: start: 20180206

REACTIONS (4)
  - Unintended pregnancy [Not Recovered/Not Resolved]
  - Suspected product quality issue [Unknown]
  - Product lot number issue [Unknown]
  - Pregnancy with implant contraceptive [Not Recovered/Not Resolved]
